FAERS Safety Report 8883702 (Version 1)
Quarter: 2012Q4

REPORT INFORMATION
  Report Type: 
  Country: US (occurrence: US)
  Receive Date: 20121102
  Receipt Date: 20121102
  Transmission Date: 20130627
  Serious: No
  Sender: FDA-Public Use
  Company Number: US-ASTRAZENECA-2011SE73444

PATIENT
  Age: 70 Year
  Sex: Female
  Weight: 77.6 kg

DRUGS (12)
  1. CRESTOR [Suspect]
     Indication: BLOOD CHOLESTEROL ABNORMAL
     Route: 048
     Dates: start: 20110921, end: 20111206
  2. CRESTOR [Suspect]
     Indication: HYPERLIPIDAEMIA
     Route: 048
     Dates: start: 20110921, end: 20111206
  3. TRAZIDONE [Concomitant]
  4. TRAMZIRANE [Concomitant]
     Indication: DIURETIC THERAPY
  5. TRAMZIRANE [Concomitant]
     Indication: BLOOD PRESSURE
  6. VITAMINS [Concomitant]
  7. VITAMIN E [Concomitant]
  8. FISH OIL [Concomitant]
  9. ASPIRIN [Concomitant]
  10. ZOLOFF [Concomitant]
  11. GLUCOSAMINE [Concomitant]
     Indication: ARTHROPATHY
  12. CO-Q10 [Concomitant]

REACTIONS (11)
  - Bone pain [Unknown]
  - Pain in jaw [Unknown]
  - Sciatica [Unknown]
  - Spinal pain [Unknown]
  - Sleep disorder due to general medical condition, insomnia type [Unknown]
  - Asthenia [Unknown]
  - Asthenia [Unknown]
  - Myalgia [Not Recovered/Not Resolved]
  - Arthralgia [Unknown]
  - Arthralgia [Unknown]
  - Fatigue [Unknown]
